FAERS Safety Report 12340793 (Version 1)
Quarter: 2016Q2

REPORT INFORMATION
  Report Type: Spontaneous
  Country: US (occurrence: None)
  Receive Date: 20160505
  Receipt Date: 20160505
  Transmission Date: 20160815
  Serious: No
  Sender: FDA-Public Use
  Company Number: None

PATIENT
  Age: 55 Year
  Sex: Male
  Weight: 108.86 kg

DRUGS (6)
  1. ONE PER DAY VITAMIN [Concomitant]
  2. LISINPRIL [Concomitant]
  3. NEOMYCH AND POLYMYXIN B SULFATES AND HYDOCORTSONE ATIC SUSPENSION USP [Suspect]
     Active Substance: HYDROCORTISONE\NEOMYCIN SULFATE\POLYMYXIN B SULFATE
     Indication: EAR INFECTION
     Dates: start: 201409
  4. HCTZ [Concomitant]
     Active Substance: HYDROCHLOROTHIAZIDE
  5. VARPAMIL [Concomitant]
  6. METOPROLOL TART [Concomitant]
     Active Substance: METOPROLOL TARTRATE

REACTIONS (4)
  - Tinnitus [None]
  - Condition aggravated [None]
  - Hypoacusis [None]
  - Ear infection [None]

NARRATIVE: CASE EVENT DATE: 201509
